FAERS Safety Report 4678503-4 (Version None)
Quarter: 2005Q2

REPORT INFORMATION
  Report Type: 
  Country: None (occurrence: None)
  Receive Date: 20050601
  Receipt Date: 20050318
  Transmission Date: 20051028
  Serious: Yes (Death, Other)
  Sender: FDA-Public Use
  Company Number: PHBS2005SE03935

PATIENT
  Age: 85 Year
  Sex: Female

DRUGS (8)
  1. ALVEDON [Concomitant]
  2. DETROL [Concomitant]
  3. FOLACIN [Concomitant]
  4. TRYPTIZOL [Concomitant]
  5. BEHEPAN [Concomitant]
  6. ENALAPRIL MALEATE [Concomitant]
  7. TRADOLAN [Concomitant]
  8. TEGRETOL [Suspect]
     Indication: PAIN
     Dosage: 500 MG/DAY
     Route: 048
     Dates: start: 20030503, end: 20040606

REACTIONS (3)
  - ANAEMIA [None]
  - SHOCK [None]
  - THROMBOCYTOPENIA [None]
